FAERS Safety Report 18140710 (Version 15)
Quarter: 2022Q3

REPORT INFORMATION
  Report Type: Report from Study
  Country: JP (occurrence: JP)
  Receive Date: 20200812
  Receipt Date: 20220826
  Transmission Date: 20221027
  Serious: Yes (Hospitalization, Other)
  Sender: FDA-Public Use
  Company Number: JP-ONO-2020JP018655

PATIENT
  Age: 55 Year
  Sex: Male
  Weight: 45.5 kg

DRUGS (29)
  1. ETELCALCETIDE [Suspect]
     Active Substance: ETELCALCETIDE
     Indication: Hyperparathyroidism secondary
     Dosage: 10 MILLIGRAM
     Route: 065
     Dates: start: 20190525
  2. ETELCALCETIDE [Suspect]
     Active Substance: ETELCALCETIDE
     Dosage: 5 MILLIGRAM, Q64H
     Route: 065
     Dates: start: 20190806, end: 20200227
  3. ETELCALCETIDE [Suspect]
     Active Substance: ETELCALCETIDE
     Dosage: 5 MILLIGRAM, Q56H
     Route: 065
     Dates: start: 20200229
  4. WARFARIN [Suspect]
     Active Substance: WARFARIN
     Indication: Product used for unknown indication
     Dosage: UNK
     Route: 065
     Dates: end: 20190805
  5. CLOPIDOGREL [Suspect]
     Active Substance: CLOPIDOGREL BISULFATE
     Indication: Product used for unknown indication
     Dosage: UNK
     Route: 065
     Dates: end: 20190805
  6. ROCALTROL [Concomitant]
     Active Substance: CALCITRIOL
     Dosage: 0.5 MUG, Q12H
     Route: 048
     Dates: start: 20190604, end: 20190724
  7. ROCALTROL [Concomitant]
     Active Substance: CALCITRIOL
     Dosage: 0.25 MUG, Q12H
     Route: 048
     Dates: start: 20190725, end: 20201013
  8. ROCALTROL [Concomitant]
     Active Substance: CALCITRIOL
     Dosage: 0.5 MUG, Q12H
     Route: 048
     Dates: start: 20190604, end: 20190724
  9. ROCALTROL [Concomitant]
     Active Substance: CALCITRIOL
     Dosage: 0.25 MUG, Q12H
     Dates: start: 20190725, end: 20200819
  10. FERROUS SULFATE [Concomitant]
     Active Substance: FERROUS SULFATE
     Dosage: 105 MG, EVERYDAY
     Route: 048
  11. Fesin [Concomitant]
     Dosage: 120 MILLIGRAM, QWK
     Route: 065
  12. FOSRENOL [Concomitant]
     Active Substance: LANTHANUM CARBONATE
     Dosage: 2000 MG, EVERYDAY
     Route: 048
  13. HEPARIN [Concomitant]
     Active Substance: HEPARIN SODIUM
     Dosage: UNK
     Route: 065
     Dates: start: 20190820, end: 20190912
  14. HEPARIN [Concomitant]
     Active Substance: HEPARIN SODIUM
     Dosage: UNK
     Route: 065
     Dates: start: 20200827, end: 20200901
  15. FERRIC CITRATE ANHYDROUS [Concomitant]
     Active Substance: FERRIC CITRATE ANHYDROUS
     Dosage: 1500 MG, EVERYDAY
     Route: 048
     Dates: end: 20200408
  16. FERRIC CITRATE ANHYDROUS [Concomitant]
     Active Substance: FERRIC CITRATE ANHYDROUS
     Dosage: 2250 MG, EVERYDAY
     Route: 048
     Dates: start: 20200418
  17. FERRIC CITRATE ANHYDROUS [Concomitant]
     Active Substance: FERRIC CITRATE ANHYDROUS
     Dosage: 2250 MG, EVERYDAY
     Dates: start: 20200409, end: 20210213
  18. MIRCERA [Concomitant]
     Active Substance: METHOXY POLYETHYLENE GLYCOL-EPOETIN BETA
     Dosage: 37.5 MUG, Q4W
     Route: 065
  19. EVOCALCET [Concomitant]
     Active Substance: EVOCALCET
     Dosage: 2 MG, EVERYDAY
     Route: 048
     Dates: end: 20200505
  20. LANTHANUM CARBONATE [Concomitant]
     Active Substance: LANTHANUM CARBONATE
     Dosage: 1000 MG, EVERYDAY
     Route: 065
     Dates: end: 20200224
  21. LANTHANUM CARBONATE [Concomitant]
     Active Substance: LANTHANUM CARBONATE
     Dosage: 2000 MILLIGRAM, QD
     Dates: start: 20200225, end: 20200404
  22. LANTHANUM CARBONATE [Concomitant]
     Active Substance: LANTHANUM CARBONATE
     Dosage: 4000 MG, EVERYDAY
     Dates: start: 20200225, end: 20200318
  23. LANTHANUM CARBONATE [Concomitant]
     Active Substance: LANTHANUM CARBONATE
     Dosage: 4500 MG, EVERYDAY
     Dates: start: 20200319, end: 20200411
  24. SODIUM FERROUS CITRATE [Concomitant]
     Active Substance: SODIUM FERROUS CITRATE
     Dosage: 100 MG, EVERYDAY
     Route: 065
     Dates: start: 20190824, end: 20210311
  25. SODIUM FERROUS CITRATE [Concomitant]
     Active Substance: SODIUM FERROUS CITRATE
     Dosage: 50 MG, EVERYDAY
     Dates: start: 20210312
  26. CALCITRIOL [Concomitant]
     Active Substance: CALCITRIOL
     Dosage: 0.25 MICROGRAM, QOD
     Dates: start: 20210312, end: 20210614
  27. CALCITRIOL [Concomitant]
     Active Substance: CALCITRIOL
     Dosage: 0.25 MUG, EVERYDAY
     Route: 048
     Dates: start: 20200820, end: 20210301
  28. CALCITRIOL [Concomitant]
     Active Substance: CALCITRIOL
     Dosage: 0.25 MUG, Q56H
     Dates: start: 20210302, end: 20210531
  29. CALCITRIOL [Concomitant]
     Active Substance: CALCITRIOL
     Dosage: 0.25 MUG, EVERYDAY
     Dates: start: 20210601

REACTIONS (7)
  - Subcutaneous haematoma [Recovering/Resolving]
  - Procedural pain [Recovered/Resolved]
  - Urinary tract infection [Recovering/Resolving]
  - Gastroenteritis staphylococcal [Recovering/Resolving]
  - Shunt occlusion [Recovering/Resolving]
  - Shunt stenosis [Recovering/Resolving]
  - Shunt stenosis [Recovered/Resolved]

NARRATIVE: CASE EVENT DATE: 20190805
